FAERS Safety Report 8506748 (Version 4)
Quarter: 2014Q2

REPORT INFORMATION
  Report Type: Spontaneous
  Country: US (occurrence: US)
  Receive Date: 20120412
  Receipt Date: 20131017
  Transmission Date: 20141212
  Serious: Yes (Other)
  Sender: FDA-Public Use
  Company Number: US-PFIZER INC-2012086535

PATIENT
  Age: 32 Year
  Sex: Male

DRUGS (8)
  1. SOLU-CORTEF [Suspect]
     Indication: PREMEDICATION
     Dosage: 250 MG EVERY TWO WEEKS
     Route: 042
     Dates: start: 20120228
  2. KRYSTEXXA [Suspect]
     Indication: GOUT
     Dosage: 8 MG EVERY 2 WEEKS
     Route: 042
     Dates: start: 20120228
  3. TYLENOL [Concomitant]
     Indication: PREMEDICATION
     Dosage: EVERY 2 WEEKS
     Dates: start: 20120228
  4. CLARITIN [Concomitant]
     Indication: PREMEDICATION
     Dosage: EVERY 2 WEEKS
     Dates: start: 20120228
  5. COLCRYS [Concomitant]
     Dosage: UNK
  6. PREDNISONE [Concomitant]
     Dosage: UNK
     Dates: start: 20120214
  7. VICODIN [Concomitant]
     Dosage: UNK
  8. ALEVE [Concomitant]
     Dosage: UNK

REACTIONS (5)
  - Infusion related reaction [Recovered/Resolved]
  - Hyperhidrosis [Recovered/Resolved]
  - Abdominal pain upper [Recovered/Resolved]
  - Blood pressure increased [Unknown]
  - Drug ineffective [Unknown]
